FAERS Safety Report 11589115 (Version 20)
Quarter: 2016Q3

REPORT INFORMATION
  Report Type: Spontaneous
  Country: US (occurrence: US)
  Receive Date: 20151002
  Receipt Date: 20160708
  Transmission Date: 20161109
  Serious: Yes (Other)
  Sender: FDA-Public Use
  Company Number: US-PFIZER INC-2015316316

PATIENT
  Age: 66 Year
  Sex: Male
  Weight: 88 kg

DRUGS (12)
  1. HYDROCORTISONE. [Concomitant]
     Active Substance: HYDROCORTISONE
  2. SUTENT [Suspect]
     Active Substance: SUNITINIB MALATE
     Indication: METASTATIC RENAL CELL CARCINOMA
     Dosage: 50 MG, DAILY, CYCLIC (28 DAYS ON/14 DAYS OFF)
     Route: 048
     Dates: start: 20150908
  3. IMODIUM [Suspect]
     Active Substance: LOPERAMIDE HYDROCHLORIDE
     Dosage: 2 MG, AS NEEDED (2,1,1,1 AND 1 )
     Route: 048
  4. IMODIUM [Suspect]
     Active Substance: LOPERAMIDE HYDROCHLORIDE
     Dosage: 2 DF, 2X/DAY
     Dates: start: 201511, end: 201512
  5. MIRALAX [Concomitant]
     Active Substance: POLYETHYLENE GLYCOL 3350
     Indication: CONSTIPATION
     Dosage: UNK
     Dates: start: 201505, end: 201510
  6. SUTENT [Suspect]
     Active Substance: SUNITINIB MALATE
     Dosage: 37.5 MG, DAILY, CYCLIC (2 WEEKS ON/1 WEEK OFF)
     Route: 048
     Dates: start: 20151216
  7. SUTENT [Suspect]
     Active Substance: SUNITINIB MALATE
     Dosage: 25 MG, CYCLIC (14 DAYS ON AND 7 DAYS OFF) (2 WEEKS ON/1 WEEK OFF)
     Dates: start: 20150908
  8. IMODIUM [Suspect]
     Active Substance: LOPERAMIDE HYDROCHLORIDE
     Indication: DIARRHOEA
     Dosage: 2 MG, 1X/DAY, ONE TABLET ONCE A DAY
     Route: 048
     Dates: start: 20151001, end: 20151001
  9. OMEPRAZOLE. [Concomitant]
     Active Substance: OMEPRAZOLE
  10. METAMUCIL [Concomitant]
     Active Substance: PLANTAGO SEED
  11. SUTENT [Suspect]
     Active Substance: SUNITINIB MALATE
     Dosage: 50 MG, DAILY, CYCLIC (2 WEEKS ON/1 WEEK OFF)
     Route: 048
     Dates: start: 2015
  12. IMODIUM [Suspect]
     Active Substance: LOPERAMIDE HYDROCHLORIDE
     Dosage: 2 MG, 2X/DAY
     Route: 048
     Dates: start: 201510

REACTIONS (25)
  - Bowel movement irregularity [Not Recovered/Not Resolved]
  - Tooth fracture [Recovered/Resolved]
  - Dyspnoea [Unknown]
  - Diarrhoea [Not Recovered/Not Resolved]
  - Disease progression [Unknown]
  - Abdominal pain upper [Unknown]
  - Acne [Recovered/Resolved]
  - Pruritus [Unknown]
  - Burning sensation [Recovered/Resolved]
  - Haematochezia [Not Recovered/Not Resolved]
  - Dyspepsia [Unknown]
  - Blister [Not Recovered/Not Resolved]
  - Rash [Unknown]
  - Muscle twitching [Unknown]
  - Fatigue [Unknown]
  - Haemorrhoids [Recovering/Resolving]
  - Proctalgia [Not Recovered/Not Resolved]
  - Paraesthesia [Unknown]
  - Chromaturia [Recovered/Resolved]
  - Pain in extremity [Unknown]
  - Terminal insomnia [Not Recovered/Not Resolved]
  - Nausea [Recovered/Resolved]
  - Headache [Not Recovered/Not Resolved]
  - Onychoclasis [Recovered/Resolved]
  - Metastatic renal cell carcinoma [Unknown]

NARRATIVE: CASE EVENT DATE: 2015
